FAERS Safety Report 15417295 (Version 4)
Quarter: 2019Q1

REPORT INFORMATION
  Report Type: Report from Study
  Country: US (occurrence: US)
  Receive Date: 20180924
  Receipt Date: 20190329
  Transmission Date: 20190417
  Serious: Yes (Hospitalization, Other)
  Sender: FDA-Public Use
  Company Number: PHEH2018US039723

PATIENT
  Sex: Female

DRUGS (1)
  1. SANDIMMUNE [Suspect]
     Active Substance: CYCLOSPORINE
     Indication: TRANSPLANT
     Dosage: 175 MG, (100 MG- AM, 75 MG- PM)
     Route: 048
     Dates: start: 1995

REACTIONS (7)
  - Nasopharyngitis [Recovering/Resolving]
  - Renal impairment [Unknown]
  - Malaise [Unknown]
  - Hypertension [Unknown]
  - Blood glucose increased [Unknown]
  - Influenza [Unknown]
  - Disorientation [Unknown]
